FAERS Safety Report 8006952-5 (Version None)
Quarter: 2011Q4

REPORT INFORMATION
  Report Type: 
  Country: None (occurrence: None)
  Receive Date: 20111227
  Receipt Date: 20111213
  Transmission Date: 20120403
  Serious: Yes (Hospitalization)
  Sender: FDA-Public Use
  Company Number: FR-TEVA-314470ISR

PATIENT
  Sex: Male

DRUGS (14)
  1. FUNGIZONE [Concomitant]
  2. PIPERACILLIN AND TAZOBACTAM [Concomitant]
  3. ETOPOSIDE [Suspect]
     Indication: NON-HODGKIN'S LYMPHOMA
     Route: 042
     Dates: start: 20110715, end: 20110718
  4. FORTZAAR (LOSARTAN - HYDROCHLOROTHIAZIDE) [Concomitant]
  5. TARKA [Concomitant]
  6. NEXIUM [Concomitant]
  7. ZOVIRAX [Concomitant]
  8. ALKERAN [Suspect]
     Indication: NON-HODGKIN'S LYMPHOMA
     Route: 042
     Dates: start: 20110719, end: 20110719
  9. XANAX [Concomitant]
  10. OXYCODONE HCL [Concomitant]
  11. CYTARABINE [Suspect]
     Indication: NON-HODGKIN'S LYMPHOMA
     Route: 042
     Dates: start: 20110715, end: 20110718
  12. ACETAMINOPHEN [Concomitant]
  13. BICNU [Suspect]
     Indication: NON-HODGKIN'S LYMPHOMA
     Route: 042
     Dates: start: 20110715, end: 20110718
  14. CASPOFUNGINE [Concomitant]

REACTIONS (2)
  - MELAENA [None]
  - VOMITING [None]
